FAERS Safety Report 23413417 (Version 1)
Quarter: 2024Q1

REPORT INFORMATION
  Report Type: Spontaneous
  Country: US (occurrence: US)
  Receive Date: 20240117
  Receipt Date: 20240117
  Transmission Date: 20240410
  Serious: No
  Sender: FDA-Public Use
  Company Number: US-NOVOPROD-1140620

PATIENT
  Age: 31 Year
  Sex: Female

DRUGS (2)
  1. OZEMPIC [Suspect]
     Active Substance: SEMAGLUTIDE
     Indication: Weight control
  2. OZEMPIC [Suspect]
     Active Substance: SEMAGLUTIDE
     Indication: Gestational diabetes
     Dosage: 0.25 MG
     Route: 058
     Dates: start: 20231107

REACTIONS (4)
  - Arthralgia [Not Recovered/Not Resolved]
  - Off label use [Recovered/Resolved]
  - Product use in unapproved indication [Not Recovered/Not Resolved]
  - Maternal exposure during pregnancy [Unknown]

NARRATIVE: CASE EVENT DATE: 20231107
